FAERS Safety Report 5799197-0 (Version None)
Quarter: 2008Q3

REPORT INFORMATION
  Report Type: 
  Country: None (occurrence: None)
  Receive Date: 20080701
  Receipt Date: 20080618
  Transmission Date: 20090109
  Serious: No
  Sender: FDA-Public Use
  Company Number: C-08-0012-W

PATIENT
  Age: 60 Year
  Sex: Female
  Weight: 63.5036 kg

DRUGS (4)
  1. RANITIDINE HCL [Suspect]
     Indication: GASTROOESOPHAGEAL REFLUX DISEASE
     Dosage: 1 TABLET 2X/DAY ORALLY
     Route: 048
     Dates: start: 20080612, end: 20080618
  2. LEVOTHYROXINE SODIUM [Concomitant]
  3. UNNAMED ANTIHISTAMINE [Concomitant]
  4. UNNAMED DIURETIC [Concomitant]

REACTIONS (2)
  - DRUG INEFFECTIVE [None]
  - DYSPEPSIA [None]
